FAERS Safety Report 26147874 (Version 1)
Quarter: 2025Q4

REPORT INFORMATION
  Report Type: Spontaneous
  Country: CN (occurrence: CN)
  Receive Date: 20251212
  Receipt Date: 20251212
  Transmission Date: 20260118
  Serious: Yes (Other)
  Sender: JOHNSON AND JOHNSON
  Company Number: CN-JNJFOC-20251211014

PATIENT

DRUGS (2)
  1. REMICADE [Suspect]
     Active Substance: INFLIXIMAB
     Indication: Crohn^s disease
     Dosage: 100 MG* 1/VIAL
     Route: 041
  2. METHOTREXATE [Concomitant]
     Active Substance: METHOTREXATE
     Indication: Product used for unknown indication

REACTIONS (7)
  - Crohn^s disease [Unknown]
  - Intestinal fistula [Unknown]
  - Abdominal abscess [Unknown]
  - Drug specific antibody [Unknown]
  - Blood fibrinogen decreased [Unknown]
  - Drug level decreased [Unknown]
  - Anal fistula [Unknown]

NARRATIVE: CASE EVENT DATE: 20200101
